FAERS Safety Report 6557024-8 (Version None)
Quarter: 2010Q1

REPORT INFORMATION
  Report Type: 
  Country: None (occurrence: None)
  Receive Date: 20100126
  Receipt Date: 20100111
  Transmission Date: 20100710
  Serious: Yes (Death)
  Sender: FDA-Public Use
  Company Number: 004653

PATIENT
  Age: 51 Year
  Sex: Female

DRUGS (8)
  1. ACETAMINOPHEN AND HYDROCODONE BITARTRATE [Suspect]
  2. ACETAMINOPHEN [Suspect]
  3. DIAZEPAM [Suspect]
  4. BENZODIAZEPINE DERIVATIVES [Suspect]
  5. FENTANYL-100 [Suspect]
  6. EPHEDRINE SUL CAP [Suspect]
  7. MIDAZOLAM HCL [Suspect]
  8. IBUPROFEN [Suspect]

REACTIONS (1)
  - INTENTIONAL DRUG MISUSE [None]
